FAERS Safety Report 24322747 (Version 1)
Quarter: 2024Q3

REPORT INFORMATION
  Report Type: Other
  Country: FR (occurrence: FR)
  Receive Date: 20240916
  Receipt Date: 20240916
  Transmission Date: 20241017
  Serious: Yes (Other)
  Sender: ZYDUS PHARM
  Company Number: None

PATIENT

DRUGS (6)
  1. DULOXETINE [Suspect]
     Active Substance: DULOXETINE
     Indication: Neuralgia
     Dosage: 60 MILLIGRAM, BID
     Route: 048
  2. PREGABALIN [Suspect]
     Active Substance: PREGABALIN
     Indication: Neuralgia
     Dosage: 125 MILLIGRAM, QD
     Route: 048
  3. AMITRIPTYLINE HYDROCHLORIDE [Suspect]
     Active Substance: AMITRIPTYLINE HYDROCHLORIDE
     Indication: Neuralgia
     Dosage: 50 MILLIGRAM, QD
     Route: 048
  4. TAHOR [Suspect]
     Active Substance: ATORVASTATIN CALCIUM
     Indication: Dyslipidaemia
     Dosage: 80 MILLIGRAM, QD
     Route: 048
  5. KETOPROFEN [Suspect]
     Active Substance: KETOPROFEN
     Indication: Neuralgia
     Dosage: 100 MILLIGRAM, BID
     Route: 065
  6. MELATONIN [Suspect]
     Active Substance: MELATONIN
     Indication: Insomnia
     Dosage: 6 MILLIGRAM, QD
     Route: 048

REACTIONS (1)
  - Mitral valve disease [Not Recovered/Not Resolved]

NARRATIVE: CASE EVENT DATE: 20231001
